FAERS Safety Report 24012814 (Version 1)
Quarter: 2024Q2

REPORT INFORMATION
  Report Type: Spontaneous
  Country: JP (occurrence: JP)
  Receive Date: 20240626
  Receipt Date: 20240626
  Transmission Date: 20240716
  Serious: Yes (Other)
  Sender: FDA-Public Use
  Company Number: JP-Vifor (International) Inc.-VIT-2024-05318

PATIENT

DRUGS (2)
  1. TAVNEOS [Suspect]
     Active Substance: AVACOPAN
     Indication: Product used for unknown indication
     Dosage: UNK
     Route: 048
  2. TAVNEOS [Suspect]
     Active Substance: AVACOPAN
     Dosage: UNK

REACTIONS (4)
  - Dysphagia [Unknown]
  - Gastrostomy [Unknown]
  - Wrong technique in product usage process [Unknown]
  - Incorrect route of product administration [Unknown]
